FAERS Safety Report 6762979-2 (Version None)
Quarter: 2010Q2

REPORT INFORMATION
  Report Type: 
  Country: None (occurrence: None)
  Receive Date: 20100609
  Receipt Date: 20100525
  Transmission Date: 20101027
  Serious: Yes (Hospitalization, Disabling, Other)
  Sender: FDA-Public Use
  Company Number: US-BAYER-201010922NA

PATIENT
  Age: 38 Year
  Sex: Female
  Weight: 58 kg

DRUGS (34)
  1. MAGNEVIST [Suspect]
     Indication: NUCLEAR MAGNETIC RESONANCE IMAGING ABDOMINAL
     Dosage: AS USED: 40 ML
     Dates: start: 20050901, end: 20050901
  2. OMNISCAN [Suspect]
     Indication: ANGIOGRAM
     Dates: start: 20040831, end: 20040831
  3. OMNISCAN [Suspect]
     Dates: start: 20040511, end: 20040511
  4. OPTIMARK [Suspect]
     Indication: ANGIOGRAM
  5. MULTIHANCE [Suspect]
     Indication: ANGIOGRAM
  6. PROHANCE [Suspect]
     Indication: ANGIOGRAM
  7. UNSPECIFIED GADOLINIUM-BASED CONTRAST AGENT [Suspect]
     Indication: ANGIOGRAM
     Dates: start: 20071108, end: 20071108
  8. UNSPECIFIED GADOLINIUM-BASED CONTRAST AGENT [Suspect]
     Dates: start: 20040801, end: 20040801
  9. UNSPECIFIED GADOLINIUM-BASED CONTRAST AGENT [Suspect]
     Dates: start: 20080207, end: 20080207
  10. UNSPECIFIED GADOLINIUM-BASED CONTRAST AGENT [Suspect]
     Dates: start: 20070511, end: 20070511
  11. UNSPECIFIED GADOLINIUM-BASED CONTRAST AGENT [Suspect]
     Dates: start: 20070809, end: 20070809
  12. UNSPECIFIED GADOLINIUM-BASED CONTRAST AGENT [Suspect]
     Dates: start: 20040501, end: 20040501
  13. UNSPECIFIED GADOLINIUM-BASED CONTRAST AGENT [Suspect]
     Dates: start: 20090304, end: 20090304
  14. UNSPECIFIED GADOLINIUM-BASED CONTRAST AGENT [Suspect]
     Dates: start: 20080424, end: 20080424
  15. UNSPECIFIED GADOLINIUM-BASED CONTRAST AGENT [Suspect]
     Dates: start: 20061120, end: 20061120
  16. UNSPECIFIED GADOLINIUM-BASED CONTRAST AGENT [Suspect]
     Dates: start: 20060404, end: 20060404
  17. UNSPECIFIED GADOLINIUM-BASED CONTRAST AGENT [Suspect]
     Dates: start: 20070206, end: 20070206
  18. PAIN MEDICATIONS [Concomitant]
     Indication: PAIN
  19. PREDNISONE [Concomitant]
  20. ALENDRONATE [Concomitant]
  21. LABETALOL HCL [Concomitant]
  22. CELLCEPT [Concomitant]
  23. PROGRAFF [Concomitant]
  24. MAGNESIUM [Concomitant]
  25. CALCIUM CARBONATE [Concomitant]
  26. EPOGEN [Concomitant]
  27. IRON [Concomitant]
  28. COUMADIN [Concomitant]
     Route: 048
     Dates: start: 20040515
  29. REQUIP [Concomitant]
     Route: 048
  30. TOPAMAX [Concomitant]
     Route: 048
  31. PREDNISONE [Concomitant]
     Route: 048
  32. VITAMIN C [Concomitant]
     Route: 048
  33. HEPARIN [Concomitant]
     Dosage: 25000U/500 ML D5W
     Route: 042
     Dates: start: 20040514
  34. PROCRIT [Concomitant]
     Route: 042
     Dates: start: 20040514

REACTIONS (18)
  - DEFORMITY [None]
  - EXTREMITY CONTRACTURE [None]
  - HYPERKERATOSIS [None]
  - JOINT CONTRACTURE [None]
  - JOINT RANGE OF MOTION DECREASED [None]
  - JOINT STIFFNESS [None]
  - MOTOR DYSFUNCTION [None]
  - MUSCULAR WEAKNESS [None]
  - MUSCULOSKELETAL STIFFNESS [None]
  - NEPHROGENIC SYSTEMIC FIBROSIS [None]
  - OEDEMA [None]
  - OEDEMA PERIPHERAL [None]
  - PAIN [None]
  - RASH [None]
  - SKIN DISCOLOURATION [None]
  - SKIN EXFOLIATION [None]
  - SKIN HYPERTROPHY [None]
  - SKIN INDURATION [None]
